FAERS Safety Report 9655908 (Version 2)
Quarter: 2013Q4

REPORT INFORMATION
  Report Type: Spontaneous
  Country: US (occurrence: US)
  Receive Date: 20131030
  Receipt Date: 20131224
  Transmission Date: 20140711
  Serious: Yes (Other)
  Sender: FDA-Public Use
  Company Number: US-BRISTOL-MYERS SQUIBB COMPANY-19624527

PATIENT
  Age: 29 Year
  Sex: Female
  Weight: 90.7 kg

DRUGS (3)
  1. ABILIFY [Suspect]
     Indication: DEPRESSION
     Dates: start: 20131014, end: 20131016
  2. CYMBALTA [Suspect]
     Indication: DEPRESSION
     Dates: start: 20130919
  3. TRAZODONE HCL [Suspect]
     Indication: INSOMNIA
     Dates: start: 20130930

REACTIONS (1)
  - Hallucination [Unknown]
